FAERS Safety Report 7420864-7 (Version None)
Quarter: 2011Q2

REPORT INFORMATION
  Report Type: 
  Country: None (occurrence: None)
  Receive Date: 20110418
  Receipt Date: 20110405
  Transmission Date: 20111010
  Serious: Yes (Disabling)
  Sender: FDA-Public Use
  Company Number: DE-ROCHE-770478

PATIENT
  Sex: Female
  Weight: 92 kg

DRUGS (4)
  1. ASPIRIN [Concomitant]
  2. PARACETAMOL [Concomitant]
     Dosage: DRUG: PARACETAMOL 500
  3. TAMIFLU [Suspect]
     Route: 048
     Dates: start: 20091210
  4. IBU [Concomitant]
     Dosage: DRUG: IBU 400

REACTIONS (5)
  - SPEECH DISORDER [None]
  - GAIT DISTURBANCE [None]
  - MUSCLE SPASMS [None]
  - MUSCLE CONTRACTIONS INVOLUNTARY [None]
  - MUSCULAR WEAKNESS [None]
